FAERS Safety Report 13443482 (Version 1)
Quarter: 2017Q2

REPORT INFORMATION
  Report Type: Report from Study
  Country: CA (occurrence: CA)
  Receive Date: 20170414
  Receipt Date: 20170414
  Transmission Date: 20170830
  Serious: Yes (Death)
  Sender: FDA-Public Use
  Company Number: PHHY2016CA126083

PATIENT
  Age: 59 Year
  Sex: Female

DRUGS (1)
  1. VOTRIENT [Suspect]
     Active Substance: PAZOPANIB HYDROCHLORIDE
     Indication: SOFT TISSUE SARCOMA
     Dosage: 800 MG, UNK
     Route: 048
     Dates: start: 20160802

REACTIONS (4)
  - Inappropriate schedule of drug administration [Unknown]
  - Prescribed overdose [Unknown]
  - Death [Fatal]
  - Hair colour changes [Unknown]

NARRATIVE: CASE EVENT DATE: 20160908
